FAERS Safety Report 19780351 (Version 1)
Quarter: 2021Q3

REPORT INFORMATION
  Report Type: Spontaneous
  Country: CA (occurrence: CA)
  Receive Date: 20210902
  Receipt Date: 20210902
  Transmission Date: 20211014
  Serious: Yes (Hospitalization)
  Sender: FDA-Public Use
  Company Number: CA-TEVA-2021-CA-1947341

PATIENT
  Age: 73 Year
  Sex: Female

DRUGS (11)
  1. TAXOL [Suspect]
     Active Substance: PACLITAXEL
  2. STEMETIL [Concomitant]
     Active Substance: PROCHLORPERAZINE
  3. ZOFRAN [Concomitant]
     Active Substance: ONDANSETRON HYDROCHLORIDE
  4. VITAMIN B12 [Concomitant]
     Active Substance: CYANOCOBALAMIN
  5. VITAMIN D [Concomitant]
     Active Substance: VITAMIN D NOS
  6. DEXAMETHASONE. [Concomitant]
     Active Substance: DEXAMETHASONE
  7. NYSTATIN. [Concomitant]
     Active Substance: NYSTATIN
  8. VITAMIN C [Concomitant]
     Active Substance: ASCORBIC ACID
  9. CARBOPLATIN. [Suspect]
     Active Substance: CARBOPLATIN
     Route: 042
  10. ACETAMINOPHEN. [Concomitant]
     Active Substance: ACETAMINOPHEN
  11. TRIAMTERENE + HYDROCHLOROTHIAZIDE [Concomitant]
     Active Substance: HYDROCHLOROTHIAZIDE\TRIAMTERENE

REACTIONS (1)
  - Febrile neutropenia [Recovered/Resolved]
